FAERS Safety Report 11228289 (Version 1)
Quarter: 2015Q2

REPORT INFORMATION
  Report Type: Report from Study
  Country: US (occurrence: US)
  Receive Date: 20150630
  Receipt Date: 20150630
  Transmission Date: 20150821
  Serious: Yes (Other)
  Sender: FDA-Public Use
  Company Number: US-ABBVIE-15P-163-1414416-00

PATIENT
  Sex: Female

DRUGS (2)
  1. LUPRON DEPOT [Suspect]
     Active Substance: LEUPROLIDE ACETATE
     Indication: ENDOMETRIOSIS
     Route: 050
     Dates: start: 1994
  2. LUPRON DEPOT [Suspect]
     Active Substance: LEUPROLIDE ACETATE
     Route: 050
     Dates: start: 2000

REACTIONS (14)
  - Vulvovaginal dryness [Unknown]
  - Hot flush [Unknown]
  - Migraine with aura [Unknown]
  - Pituitary tumour [Not Recovered/Not Resolved]
  - Hot flush [Unknown]
  - Mood swings [Unknown]
  - Exposure during pregnancy [Unknown]
  - Hypertension [Unknown]
  - Endometriosis [Unknown]
  - Vulvovaginal dryness [Unknown]
  - Laparoscopy [Unknown]
  - Endometriosis [Unknown]
  - Acne [Unknown]
  - Mood swings [Unknown]

NARRATIVE: CASE EVENT DATE: 1994
